FAERS Safety Report 6174876-4 (Version None)
Quarter: 2009Q2

REPORT INFORMATION
  Report Type: 
  Country: None (occurrence: None)
  Receive Date: 20090430
  Receipt Date: 20081208
  Transmission Date: 20091009
  Serious: No
  Sender: FDA-Public Use
  Company Number: US-ASTRAZENECA-2008UW27356

PATIENT
  Age: 24771 Day
  Sex: Male
  Weight: 82.6 kg

DRUGS (11)
  1. NEXIUM [Suspect]
     Indication: GASTROOESOPHAGEAL REFLUX DISEASE
     Route: 048
     Dates: start: 20071201
  2. TRICOR [Concomitant]
     Dosage: 145 MG
  3. COZAAR [Concomitant]
     Dosage: 100 MG
  4. LOVASTATIN [Concomitant]
     Dosage: 20 MG
  5. ALLEGRA [Concomitant]
     Dosage: 180 MG
  6. SINGULAIR [Concomitant]
     Dosage: 10 MG
  7. NASACORT [Concomitant]
  8. MULTI-VITAMIN [Concomitant]
  9. VITAMIN D [Concomitant]
  10. ASCORBIC ACID [Concomitant]
  11. LUTEIN [Concomitant]

REACTIONS (2)
  - PAIN IN JAW [None]
  - THROAT IRRITATION [None]
